FAERS Safety Report 13515319 (Version 5)
Quarter: 2017Q3

REPORT INFORMATION
  Report Type: Spontaneous
  Country: US (occurrence: US)
  Receive Date: 20170504
  Receipt Date: 20170728
  Transmission Date: 20171127
  Serious: Yes (Death, Hospitalization)
  Sender: FDA-Public Use
  Company Number: US-ASTELLAS-2017US016205

PATIENT
  Sex: Male

DRUGS (16)
  1. GLIPIZIDE. [Concomitant]
     Active Substance: GLIPIZIDE
     Indication: PRODUCT USED FOR UNKNOWN INDICATION
     Dosage: 5 MG, TWICE DAILY,WITH MEALS
     Route: 048
  2. LISINOPRIL. [Concomitant]
     Active Substance: LISINOPRIL
     Indication: PRODUCT USED FOR UNKNOWN INDICATION
     Route: 048
  3. SOLU-MEDROL [Concomitant]
     Active Substance: METHYLPREDNISOLONE SODIUM SUCCINATE
     Indication: PRODUCT USED FOR UNKNOWN INDICATION
     Dosage: 1000 MG,IN D5W 50ML IV BAG
     Route: 042
  4. ALLOPURINOL. [Concomitant]
     Active Substance: ALLOPURINOL
     Indication: HYPERURICAEMIA
     Route: 048
  5. CALCIUM + D3                       /01483701/ [Concomitant]
     Indication: OSTEOPOROSIS
     Route: 065
  6. FAMOTIDINE. [Concomitant]
     Active Substance: FAMOTIDINE
     Indication: PRODUCT USED FOR UNKNOWN INDICATION
     Route: 048
  7. PROGRAF [Suspect]
     Active Substance: TACROLIMUS\TACROLIMUS ANHYDROUS
     Indication: HEART TRANSPLANT
     Route: 048
  8. MYCOPHENOLATE MOFETIL. [Concomitant]
     Active Substance: MYCOPHENOLATE MOFETIL
     Indication: PRODUCT USED FOR UNKNOWN INDICATION
     Route: 048
  9. LOVAZA [Concomitant]
     Active Substance: OMEGA-3-ACID ETHYL ESTERS
     Indication: HYPERTRIGLYCERIDAEMIA
     Route: 048
  10. PRAVASTATIN. [Concomitant]
     Active Substance: PRAVASTATIN
     Indication: CORONARY ARTERY DISEASE
     Dosage: 80 MG, ONCE DAILY,EVERY EVENING
     Route: 048
  11. LANTUS [Concomitant]
     Active Substance: INSULIN GLARGINE
     Indication: HYPERGLYCAEMIA
  12. POTASSIUM CHLORIDE. [Concomitant]
     Active Substance: POTASSIUM CHLORIDE
     Indication: PRODUCT USED FOR UNKNOWN INDICATION
     Route: 048
  13. FENTANYL. [Concomitant]
     Active Substance: FENTANYL
     Indication: PAIN
     Dosage: UNK UNK, UNKNOWN FREQ.
     Route: 065
  14. ASPIRIN. [Concomitant]
     Active Substance: ASPIRIN
     Indication: PRODUCT USED FOR UNKNOWN INDICATION
     Route: 048
  15. DILTIAZEM. [Concomitant]
     Active Substance: DILTIAZEM
     Indication: PRODUCT USED FOR UNKNOWN INDICATION
     Route: 048
  16. LANTUS [Concomitant]
     Active Substance: INSULIN GLARGINE
     Indication: DIABETES MELLITUS
     Route: 058

REACTIONS (4)
  - Nephrolithiasis [Unknown]
  - Treatment noncompliance [Recovering/Resolving]
  - Cardiac failure acute [Unknown]
  - Death [Fatal]
